FAERS Safety Report 25679112 (Version 1)
Quarter: 2025Q3

REPORT INFORMATION
  Report Type: Report from Study
  Country: US (occurrence: US)
  Receive Date: 20250814
  Receipt Date: 20250814
  Transmission Date: 20251021
  Serious: Yes (Other)
  Sender: ABBVIE
  Company Number: US-ABBVIE-6286887

PATIENT
  Age: 71 Year
  Sex: Female

DRUGS (2)
  1. RINVOQ [Suspect]
     Active Substance: UPADACITINIB
     Indication: Dermatitis atopic
     Route: 048
     Dates: start: 20250407, end: 20250506
  2. RINVOQ [Suspect]
     Active Substance: UPADACITINIB
     Indication: Dermatitis atopic
     Route: 048
     Dates: start: 2025

REACTIONS (6)
  - Suicidal ideation [Unknown]
  - Skin mass [Recovering/Resolving]
  - Rash papular [Unknown]
  - Rash [Unknown]
  - Eczema [Unknown]
  - Acne [Recovered/Resolved]

NARRATIVE: CASE EVENT DATE: 20250101
